FAERS Safety Report 9386118 (Version 1)
Quarter: 2013Q3

REPORT INFORMATION
  Report Type: Spontaneous
  Country: US (occurrence: US)
  Receive Date: 20130707
  Receipt Date: 20130707
  Transmission Date: 20140515
  Serious: No
  Sender: FDA-Public Use
  Company Number: US-ALLERGAN-1303552US

PATIENT
  Age: 62 Year
  Sex: Male

DRUGS (3)
  1. LUMIGAN? 0.01% [Suspect]
     Indication: GLAUCOMA
     Dosage: 2 GTT, BID
     Route: 047
     Dates: start: 201302
  2. DORZOLAMIDE [Concomitant]
     Indication: GLAUCOMA
     Dosage: 2 GTT, UNK
     Route: 047
  3. BLOOD PRESSURE MEDICINE NOS [Concomitant]
     Indication: HYPERTENSION
     Dosage: UNK

REACTIONS (4)
  - Productive cough [Unknown]
  - Nasal discharge discolouration [Unknown]
  - Scleral hyperaemia [Unknown]
  - Incorrect dose administered [Unknown]
